FAERS Safety Report 12147288 (Version 2)
Quarter: 2016Q1

REPORT INFORMATION
  Report Type: Spontaneous
  Country: BE (occurrence: BE)
  Receive Date: 20160304
  Receipt Date: 20160316
  Transmission Date: 20160526
  Serious: Yes (Hospitalization, Other)
  Sender: FDA-Public Use
  Company Number: BE-BAYER-2016-042694

PATIENT
  Age: 17 Year
  Sex: Female
  Weight: 57 kg

DRUGS (1)
  1. YAZ [Suspect]
     Active Substance: DROSPIRENONE\ETHINYL ESTRADIOL
     Indication: CONTRACEPTION
     Dosage: UNK
     Route: 048
     Dates: start: 201404, end: 20160111

REACTIONS (9)
  - Pulmonary embolism [None]
  - Tachycardia [Recovering/Resolving]
  - Pelvic venous thrombosis [None]
  - Pain in extremity [Not Recovered/Not Resolved]
  - Groin pain [None]
  - Deep vein thrombosis [Not Recovered/Not Resolved]
  - Lung infection [None]
  - Thrombophlebitis superficial [None]
  - Peripheral swelling [Not Recovered/Not Resolved]

NARRATIVE: CASE EVENT DATE: 20160109
